FAERS Safety Report 9007012 (Version 4)
Quarter: 2013Q1

REPORT INFORMATION
  Report Type: Report from Study
  Country: US (occurrence: US)
  Receive Date: 20130110
  Receipt Date: 20130206
  Transmission Date: 20140127
  Serious: Yes (Hospitalization, Other)
  Sender: FDA-Public Use
  Company Number: US-ACTELION-A-US2013-77462

PATIENT
  Age: 75 Year
  Sex: Male

DRUGS (2)
  1. VENTAVIS [Suspect]
     Indication: PULMONARY ARTERIAL HYPERTENSION
     Dosage: UNK
     Route: 055
  2. ASPIRIN [Concomitant]

REACTIONS (4)
  - Nasopharyngitis [Unknown]
  - Bronchitis [Recovering/Resolving]
  - Cardiac failure [Recovered/Resolved]
  - Fluid retention [Unknown]
